FAERS Safety Report 11564880 (Version 1)
Quarter: 2015Q3

REPORT INFORMATION
  Report Type: Spontaneous
  Country: US (occurrence: US)
  Receive Date: 20150928
  Receipt Date: 20150928
  Transmission Date: 20151125
  Serious: No
  Sender: FDA-Public Use
  Company Number: US-009507513-1509USA012637

PATIENT
  Sex: Female

DRUGS (1)
  1. NEXPLANON [Suspect]
     Active Substance: ETONOGESTREL
     Indication: PROPHYLAXIS
     Dosage: UNK
     Route: 059
     Dates: start: 201508, end: 201509

REACTIONS (2)
  - Implant site oedema [Recovering/Resolving]
  - Implant site swelling [Recovering/Resolving]

NARRATIVE: CASE EVENT DATE: 201509
